FAERS Safety Report 8230343-5 (Version None)
Quarter: 2012Q1

REPORT INFORMATION
  Report Type: 
  Country: None (occurrence: None)
  Receive Date: 20120323
  Receipt Date: 20120316
  Transmission Date: 20120608
  Serious: Yes (Other)
  Sender: FDA-Public Use
  Company Number: US-BAYER-2012-008696

PATIENT
  Sex: Male
  Weight: 90.703 kg

DRUGS (22)
  1. DULCOLAX [DOCUSATE SODIUM] [Concomitant]
     Dosage: 5 MG EC
  2. SYNTHROID [Concomitant]
     Dosage: 112 MCG
  3. PROTEIN SUPPLEMENTS [Concomitant]
  4. XGEVA [Concomitant]
  5. LOVAZA [Concomitant]
  6. ANTI-OXIDANT [Concomitant]
  7. TPN [Concomitant]
  8. CALCIUM CARBONATE [Concomitant]
  9. CLONIDINE [Concomitant]
     Dosage: 0.2 MG
  10. PREVACID [Concomitant]
     Dosage: 15 MG STB
  11. PREDNISONE TAB [Concomitant]
     Dosage: 5 MG
  12. XANAX [Concomitant]
     Dosage: 1 MG
  13. METOCLOPRAM [Concomitant]
     Dosage: 5 MG
  14. OXYCODONE HCL [Concomitant]
     Dosage: 10 MG
  15. NEXAVAR [Suspect]
     Indication: RENAL CELL CARCINOMA
     Dosage: 400 MG, BID
     Dates: start: 20120119
  16. OXYCONTIN [Concomitant]
     Dosage: 10 MG CR
  17. METHYLIN [Concomitant]
     Dosage: 10 MG
  18. METOPROLOL SUCCINATE [Concomitant]
     Dosage: 100 MG ER
  19. PREDNISONE TAB [Concomitant]
     Indication: INCREASED APPETITE
     Dosage: 5 MG
  20. MIRTAZAPINE [Concomitant]
     Dosage: 30 MG
  21. AMLODIPINE [Concomitant]
     Dosage: 10 MG
  22. GEMFIBROZIL [Concomitant]
     Dosage: 600 MG

REACTIONS (11)
  - NERVOUSNESS [None]
  - DISTURBANCE IN ATTENTION [None]
  - FEELING JITTERY [None]
  - HYPERTENSION [None]
  - ASTHENIA [None]
  - CONSTIPATION [None]
  - MENTAL IMPAIRMENT [None]
  - NAUSEA [None]
  - FATIGUE [None]
  - MEMORY IMPAIRMENT [None]
  - FEELING ABNORMAL [None]
